FAERS Safety Report 11750994 (Version 5)
Quarter: 2018Q3

REPORT INFORMATION
  Report Type: Spontaneous
  Country: US (occurrence: US)
  Receive Date: 20151118
  Receipt Date: 20180702
  Transmission Date: 20181010
  Serious: Yes (Other)
  Sender: FDA-Public Use
  Company Number: US-BAYER-2015-413506

PATIENT
  Age: 38 Year
  Sex: Female
  Weight: 64.41 kg

DRUGS (17)
  1. CALCIUM D [Concomitant]
     Active Substance: CALCIUM\VITAMIN D
     Dosage: UNK
     Dates: start: 2014
  2. COENZYME Q10 [Concomitant]
     Active Substance: UBIDECARENONE
     Dosage: UNK
     Dates: start: 2015
  3. TYROSINE [Concomitant]
     Active Substance: TYROSINE
     Dosage: UNK
     Dates: start: 2017
  4. VITAMIN C [Concomitant]
     Active Substance: ASCORBIC ACID
     Dosage: UNK
     Dates: start: 201512, end: 201602
  5. VITAMIN B COMPLEX [Concomitant]
     Active Substance: CYANOCOBALAMIN\DEXPANTHENOL\NIACINAMIDE\PYRIDOXINE HYDROCHLORIDE\RIBOFLAVIN 5^-PHOSPHATE SODIUM\THIAMINE HYDROCHLORIDE\VITAMIN B COMPLEX
     Dosage: UNK
     Dates: start: 2015
  6. FOLIC ACID. [Concomitant]
     Active Substance: FOLIC ACID
     Dosage: UNK
     Dates: start: 2015
  7. LOESTRIN NOS [Concomitant]
     Active Substance: ETHINYL ESTRADIOL\NORETHINDRONE ACETATE
     Dosage: UNK
     Dates: start: 2012
  8. MIRENA [Suspect]
     Active Substance: LEVONORGESTREL
     Dosage: UNK
  9. ALESSE BIRTH CONTROL [Concomitant]
     Dosage: UNK
     Dates: start: 1995, end: 2004
  10. ALESSE BIRTH CONTROL [Concomitant]
     Dosage: UNK
     Dates: start: 2011, end: 2014
  11. MULTIVITAMIN [Concomitant]
     Active Substance: VITAMINS
     Dosage: UNK
     Dates: start: 2014
  12. CYCLOBENZAPRINE. [Concomitant]
     Active Substance: CYCLOBENZAPRINE
  13. ZYRTEC [Concomitant]
     Active Substance: CETIRIZINE HYDROCHLORIDE
     Dosage: UNK
     Dates: start: 2014
  14. VITAMIN D3 [Concomitant]
     Active Substance: CHOLECALCIFEROL
     Dosage: UNK
     Dates: start: 2014
  15. ACIDOPHILUS [Concomitant]
     Active Substance: LACTOBACILLUS ACIDOPHILUS
     Dosage: UNK
     Dates: start: 2014
  16. CHROMIUM [Concomitant]
     Active Substance: CHROMIC CHLORIDE\CHROMIUM
     Dosage: UNK
     Dates: start: 2014, end: 2016
  17. MAGNESIUM [Concomitant]
     Active Substance: MAGNESIUM

REACTIONS (89)
  - Rheumatoid arthritis [Unknown]
  - Alexia [None]
  - Somnolence [None]
  - Poor peripheral circulation [Unknown]
  - Hypertension [Unknown]
  - Dizziness [Unknown]
  - Dry eye [Unknown]
  - Food allergy [Unknown]
  - Alopecia [Recovered/Resolved]
  - Skin texture abnormal [Unknown]
  - Pruritus [Unknown]
  - Fatigue [Recovering/Resolving]
  - Myalgia [None]
  - Fatigue [None]
  - Acne [Unknown]
  - Confusional state [Unknown]
  - Dyspepsia [Unknown]
  - Migraine [Unknown]
  - Endocrine disorder [Unknown]
  - Urinary tract disorder [Unknown]
  - Dysmenorrhoea [Unknown]
  - Perfume sensitivity [Unknown]
  - Memory impairment [Recovered/Resolved]
  - Insomnia [None]
  - Gluten sensitivity [Unknown]
  - Pain [Recovering/Resolving]
  - Polymenorrhoea [Unknown]
  - Menstruation irregular [Unknown]
  - Sleep paralysis [Unknown]
  - Hypersensitivity [Unknown]
  - Abdominal distension [Recovered/Resolved]
  - Thyroid disorder [Unknown]
  - Nausea [Unknown]
  - Urinary tract infection [Recovered/Resolved]
  - Vision blurred [Unknown]
  - Anxiety [Recovered/Resolved]
  - Anger [None]
  - Insulin resistance [Unknown]
  - Abdominal distension [Unknown]
  - Joint swelling [Unknown]
  - Muscular weakness [None]
  - Loss of libido [Unknown]
  - Menorrhagia [Unknown]
  - Abdominal pain [Unknown]
  - Vaginal infection [Recovered/Resolved]
  - Tooth disorder [Unknown]
  - Pelvic pain [Unknown]
  - Temperature intolerance [Unknown]
  - Acne cystic [Unknown]
  - Dysmenorrhoea [Recovered/Resolved]
  - Premenstrual syndrome [Unknown]
  - Mood swings [None]
  - Urinary tract infection [Recovered/Resolved]
  - Inflammation [Recovered/Resolved]
  - Hypothalamo-pituitary disorder [Unknown]
  - Eye pruritus [Unknown]
  - Weight increased [Unknown]
  - Blood oestrogen abnormal [Unknown]
  - Cold sweat [Unknown]
  - Autoimmune thyroiditis [Unknown]
  - Disturbance in attention [None]
  - Arthralgia [Recovered/Resolved]
  - Syncope [Unknown]
  - Headache [Recovered/Resolved]
  - Vaginal haemorrhage [Recovering/Resolving]
  - Allergy to metals [Unknown]
  - Milk allergy [Unknown]
  - Autoimmune disorder [Unknown]
  - Lethargy [Unknown]
  - Middle insomnia [None]
  - Dyspareunia [Recovered/Resolved]
  - Headache [Recovered/Resolved]
  - Depression [Recovered/Resolved]
  - Blood cholesterol increased [Unknown]
  - Nail disorder [Unknown]
  - Cystitis [Recovered/Resolved]
  - Bladder disorder [Unknown]
  - Vaginal discharge [Recovering/Resolving]
  - Rhinitis allergic [Unknown]
  - Skin discolouration [Unknown]
  - Neurotoxicity [Unknown]
  - Feeling abnormal [Recovered/Resolved]
  - Dizziness [None]
  - Mood swings [None]
  - Hypoaesthesia [None]
  - Menorrhagia [Unknown]
  - Neuromyopathy [Unknown]
  - Dermatitis allergic [Unknown]
  - Urinary incontinence [Unknown]

NARRATIVE: CASE EVENT DATE: 2005
